FAERS Safety Report 7832893-X (Version None)
Quarter: 2011Q4

REPORT INFORMATION
  Report Type: 
  Country: None (occurrence: None)
  Receive Date: 20111019
  Receipt Date: 20111003
  Transmission Date: 20120403
  Serious: Yes (Other)
  Sender: FDA-Public Use
  Company Number: CIP11002562

PATIENT
  Age: 77 Year
  Sex: Female

DRUGS (4)
  1. CALCIUM CARBONATE [Concomitant]
  2. RISEDRONATE SODIUM [Suspect]
     Indication: OSTEOPOROSIS
     Dosage: 35 MG PER WEEK, ORAL
     Route: 048
  3. ALENDRONATE SODIUM [Suspect]
     Indication: OSTEOPOROSIS
     Dosage: ORAL
     Route: 048
  4. COLECALCIFEROL (COLECALCIFEROL) [Concomitant]

REACTIONS (4)
  - TIBIA FRACTURE [None]
  - FALL [None]
  - IMPAIRED HEALING [None]
  - FEMUR FRACTURE [None]
